FAERS Safety Report 6956851-2 (Version None)
Quarter: 2010Q3

REPORT INFORMATION
  Report Type: 
  Country: None (occurrence: None)
  Receive Date: 20100826
  Receipt Date: 20100814
  Transmission Date: 20110219
  Serious: Yes (Hospitalization, Other)
  Sender: FDA-Public Use
  Company Number: 2010AP001751

PATIENT
  Age: 13 Year
  Sex: Male

DRUGS (13)
  1. OMEPRAZOLE [Suspect]
     Dosage: 20 MG; QD PO
     Route: 048
  2. CYCLOPHOSPHAMIDE [Suspect]
     Indication: ACUTE LYMPHOCYTIC LEUKAEMIA
     Dosage: 1000 MG/M**2; IV
     Route: 042
  3. BACTRIM [Suspect]
     Dosage: 400 MG; BID PO
     Route: 048
  4. METHOTREXATE [Suspect]
     Indication: ACUTE LYMPHOCYTIC LEUKAEMIA
     Dosage: 12 MG; INTH
     Route: 037
  5. CYTARABINE [Suspect]
     Indication: ACUTE LYMPHOCYTIC LEUKAEMIA
     Dosage: 75 MG/M**2; IV
     Route: 042
  6. CYTARABINE [Suspect]
     Indication: ACUTE LYMPHOCYTIC LEUKAEMIA
     Dosage: 30 MG; INTH
     Route: 037
  7. TIOGUANINE (TIOGUANINE) [Concomitant]
  8. DEXAMETHASONE [Concomitant]
  9. ASPARAGINASE (ASPARAGINASE) [Concomitant]
  10. VINCRISTINE [Concomitant]
  11. DOXORUBICIN HCL [Concomitant]
  12. METHYLPREDNISOLONE [Concomitant]
  13. ONDANSETRON [Concomitant]

REACTIONS (4)
  - DYSARTHRIA [None]
  - HAEMOGLOBIN DECREASED [None]
  - HEMIPARESIS [None]
  - PLATELET COUNT DECREASED [None]
